FAERS Safety Report 25618486 (Version 1)
Quarter: 2025Q3

REPORT INFORMATION
  Report Type: Spontaneous
  Country: US (occurrence: US)
  Receive Date: 20250729
  Receipt Date: 20250729
  Transmission Date: 20251020
  Serious: Yes (Hospitalization, Disabling, Other)
  Sender: FRESENIUS KABI
  Company Number: US-FreseniusKabi-FK202510418

PATIENT
  Age: 38 Year
  Sex: Male

DRUGS (3)
  1. BLEOMYCIN [Suspect]
     Active Substance: BLEOMYCIN SULFATE
     Indication: Germ cell cancer metastatic
  2. ETOPOSIDE [Concomitant]
     Active Substance: ETOPOSIDE
     Indication: Germ cell cancer metastatic
  3. PACLITAXEL [Concomitant]
     Active Substance: PACLITAXEL
     Indication: Germ cell cancer metastatic

REACTIONS (1)
  - Pulmonary fibrosis [Recovering/Resolving]
